FAERS Safety Report 5563697-9 (Version None)
Quarter: 2007Q4

REPORT INFORMATION
  Report Type: 
  Country: None (occurrence: None)
  Receive Date: 20071217
  Receipt Date: 20070718
  Transmission Date: 20080405
  Serious: No
  Sender: FDA-Public Use
  Company Number: US-ASTRAZENECA-2007UW17073

PATIENT
  Age: 70 Year
  Sex: Female
  Weight: 77.1 kg

DRUGS (5)
  1. CRESTOR [Suspect]
     Indication: BLOOD CHOLESTEROL INCREASED
     Route: 048
     Dates: start: 20070301
  2. REGLAN [Concomitant]
  3. DITROPAN [Concomitant]
  4. PROTONIX [Concomitant]
  5. KWELCOF [Concomitant]

REACTIONS (1)
  - BREAST ENLARGEMENT [None]
